FAERS Safety Report 22047161 (Version 1)
Quarter: 2023Q1

REPORT INFORMATION
  Report Type: Report from Study
  Country: IT (occurrence: IT)
  Receive Date: 20230301
  Receipt Date: 20230301
  Transmission Date: 20230418
  Serious: Yes (Other)
  Sender: FDA-Public Use
  Company Number: IT-TAKEDA-2023TUS019137

PATIENT
  Age: 45 Year
  Sex: Male
  Weight: 67 kg

DRUGS (19)
  1. ADVATE [Suspect]
     Active Substance: ANTIHEMOPHILIC FACTOR, HUMAN RECOMBINANT
     Indication: Prophylaxis
     Dosage: 3000 INTERNATIONAL UNIT, 3/WEEK
     Route: 042
     Dates: start: 20050620
  2. ADVATE [Suspect]
     Active Substance: ANTIHEMOPHILIC FACTOR, HUMAN RECOMBINANT
     Indication: Prophylaxis
     Dosage: 3000 INTERNATIONAL UNIT, 3/WEEK
     Route: 042
     Dates: start: 20050620
  3. ADVATE [Suspect]
     Active Substance: ANTIHEMOPHILIC FACTOR, HUMAN RECOMBINANT
     Indication: Prophylaxis
     Dosage: 3000 INTERNATIONAL UNIT, 3/WEEK
     Route: 042
     Dates: start: 20050620
  4. ADVATE [Suspect]
     Active Substance: ANTIHEMOPHILIC FACTOR, HUMAN RECOMBINANT
     Indication: Factor VIII deficiency
  5. ADVATE [Suspect]
     Active Substance: ANTIHEMOPHILIC FACTOR, HUMAN RECOMBINANT
     Indication: Factor VIII deficiency
  6. ADVATE [Suspect]
     Active Substance: ANTIHEMOPHILIC FACTOR, HUMAN RECOMBINANT
     Indication: Factor VIII deficiency
  7. EFAVIRENZ\EMTRICITABINE\TENOFOVIR DISOPROXIL FUMARATE [Concomitant]
     Active Substance: EFAVIRENZ\EMTRICITABINE\TENOFOVIR DISOPROXIL FUMARATE
     Indication: HIV infection
     Dosage: 1 DOSAGE FORM, QD
     Route: 065
     Dates: start: 1988, end: 20141202
  8. IRBESARTAN [Concomitant]
     Active Substance: IRBESARTAN
     Indication: Hypertension
     Dosage: 75 MILLIGRAM, QD
     Route: 065
     Dates: start: 20121019, end: 20140305
  9. ACETAMINOPHEN [Concomitant]
     Active Substance: ACETAMINOPHEN
     Indication: Influenza
     Dosage: 500 MILLIGRAM, BID
     Route: 065
     Dates: start: 20121103, end: 20121108
  10. AMOXICILLIN\CLAVULANIC ACID [Concomitant]
     Active Substance: AMOXICILLIN\CLAVULANIC ACID
     Indication: Influenza
     Dosage: 1 DOSAGE FORM, BID
     Route: 065
     Dates: start: 20121103, end: 20121108
  11. RAMIPRIL [Concomitant]
     Active Substance: RAMIPRIL
     Indication: Hypertension
     Dosage: 5 MILLIGRAM, QD
     Route: 065
     Dates: start: 20140321
  12. RITONAVIR [Concomitant]
     Active Substance: RITONAVIR
     Indication: HIV test positive
     Dosage: 100 MILLIGRAM, QD
     Route: 065
     Dates: start: 20141202
  13. DARUNAVIR [Concomitant]
     Active Substance: DARUNAVIR
     Indication: HIV test positive
     Dosage: 800 MILLIGRAM, QD
     Route: 065
     Dates: start: 20141202
  14. MARAVIROC [Concomitant]
     Active Substance: MARAVIROC
     Indication: HIV test positive
     Dosage: 150 MILLIGRAM, QD
     Route: 065
     Dates: start: 20141202
  15. FLUCONAZOLE [Concomitant]
     Active Substance: FLUCONAZOLE
     Indication: Balanoposthitis
     Dosage: 150 MILLIGRAM, QD
     Route: 065
     Dates: start: 20150312
  16. EMTRICITABINE [Concomitant]
     Active Substance: EMTRICITABINE
     Indication: HIV infection
     Dosage: 200 MILLIGRAM, QD
     Route: 065
     Dates: start: 1988
  17. MICONAZOLE [Concomitant]
     Active Substance: MICONAZOLE
     Indication: Nail dystrophy
     Dosage: UNK UNK, BID
     Route: 065
     Dates: start: 20190827, end: 2019
  18. BETAMETHASONE\CALCIPOTRIENE [Concomitant]
     Active Substance: BETAMETHASONE\CALCIPOTRIENE
     Indication: Nail dystrophy
     Dosage: UNK UNK, QD
     Route: 065
     Dates: start: 20191030
  19. UREA C [Concomitant]
     Indication: Nail dystrophy
     Dosage: UNK UNK, QD
     Route: 065
     Dates: start: 20191030

REACTIONS (1)
  - Tricuspid valve incompetence [Not Recovered/Not Resolved]

NARRATIVE: CASE EVENT DATE: 20120314
